FAERS Safety Report 7604465-3 (Version None)
Quarter: 2011Q3

REPORT INFORMATION
  Report Type: 
  Country: None (occurrence: None)
  Receive Date: 20110712
  Receipt Date: 20110630
  Transmission Date: 20111222
  Serious: Yes (Hospitalization, Other)
  Sender: FDA-Public Use
  Company Number: US-PFIZER INC-2011154326

PATIENT
  Age: 54 Year
  Sex: Male
  Weight: 129 kg

DRUGS (7)
  1. TOPIRAMATE [Suspect]
     Indication: HEADACHE
  2. OXYCET [Concomitant]
     Dosage: UNK
  3. IBUPROFEN [Suspect]
     Indication: PAIN
     Dosage: 1600 MG, UNK
     Route: 065
  4. SERTRALINE HYDROCHLORIDE [Suspect]
     Indication: DEPRESSION
     Dosage: 50 MG, 1X/DAY
     Route: 048
  5. ATENOLOL [Concomitant]
     Dosage: UNK
     Route: 065
  6. ALPRAZOLAM [Concomitant]
     Dosage: UNK
  7. TOPIRAMATE [Suspect]
     Indication: MIGRAINE
     Dosage: UNK

REACTIONS (12)
  - CALCULUS URETHRAL [None]
  - GASTRIC PERFORATION [None]
  - HYPOAESTHESIA [None]
  - NECK PAIN [None]
  - NIGHTMARE [None]
  - HEADACHE [None]
  - MOOD ALTERED [None]
  - NEPHROLITHIASIS [None]
  - SEPSIS [None]
  - SPINAL CORD DISORDER [None]
  - KIDNEY INFECTION [None]
  - EMOTIONAL DISORDER [None]
